FAERS Safety Report 9039445 (Version 1)
Quarter: 2013Q1

REPORT INFORMATION
  Report Type: Report from Study
  Country: US (occurrence: US)
  Receive Date: 20130129
  Receipt Date: 20130129
  Transmission Date: 20140127
  Serious: No
  Sender: FDA-Public Use
  Company Number: US-ABBOTT-12P-163-0935372-00

PATIENT
  Age: 15 Year
  Sex: Male

DRUGS (4)
  1. HUMIRA 40 MG/0.8 ML PEN [Suspect]
     Indication: COLITIS ULCERATIVE
     Dates: start: 201109
  2. METHOTREXATE [Concomitant]
     Indication: COLITIS ULCERATIVE
     Dosage: 2.5 MG 4 TABS WEEKLY
  3. METHOTREXATE [Concomitant]
     Indication: CROHN^S DISEASE
  4. VYVANSE [Concomitant]
     Indication: ATTENTION DEFICIT/HYPERACTIVITY DISORDER
     Dosage: 20MG DAILY

REACTIONS (1)
  - Injection site haemorrhage [Recovering/Resolving]
